FAERS Safety Report 18142154 (Version 1)
Quarter: 2020Q3

REPORT INFORMATION
  Report Type: Spontaneous
  Country: DE (occurrence: DE)
  Receive Date: 20200812
  Receipt Date: 20200812
  Transmission Date: 20201103
  Serious: Yes (Hospitalization)
  Sender: FDA-Public Use
  Company Number: DE-MYLANLABS-2020M1070114

PATIENT
  Age: 84 Year
  Sex: Female
  Weight: 83 kg

DRUGS (10)
  1. FEBUXOSTAT. [Concomitant]
     Active Substance: FEBUXOSTAT
     Dosage: 80 MILLIGRAM, QD, 80 MG, 1?0?0?0, TABLETTEN
     Route: 048
  2. COLECALCIFEROL [Concomitant]
     Active Substance: CHOLECALCIFEROL
     Dosage: UNK, QD, 20000 IE, 1?0?0?0, KAPSELN
     Route: 048
  3. TORASEMIDE [Suspect]
     Active Substance: TORSEMIDE
     Indication: PRODUCT USED FOR UNKNOWN INDICATION
     Dosage: 10 MILLIGRAM, BID, 10 MG, 1?1?0?0, TABLETTEN
     Route: 048
  4. GABAPENTIN. [Concomitant]
     Active Substance: GABAPENTIN
     Dosage: 100 MG, 1?0?0?2, KAPSELN
     Route: 048
  5. AMITRIPTYLIN [Concomitant]
     Active Substance: AMITRIPTYLINE
     Dosage: 100 MG, 0?0?0.5?0, RETARD?TABLETTEN
     Route: 048
  6. CARVEDILOL. [Concomitant]
     Active Substance: CARVEDILOL
     Dosage: 12.5 MILLIGRAM, BID, 12.5 MG, 1?1?0?0, TABLETTEN
     Route: 048
  7. ACETYLSALICYLIC ACID [Concomitant]
     Active Substance: ASPIRIN
     Dosage: 100 MILLIGRAM, QD, 100 MG, 0?1?0?0, TABLETTEN
     Route: 048
  8. LEVOTHYROXIN [Concomitant]
     Active Substance: LEVOTHYROXINE
     Dosage: 0.125 MILLIGRAM, QD, 0.125 MG, 1?0?0?0, TABLETTEN
     Route: 048
  9. MOXONIDIN [Concomitant]
     Active Substance: MOXONIDINE
     Dosage: 0.2 MILLIGRAM, BID, 0.2 MG, 1?0?1?0, TABLETTEN
     Route: 048
  10. AMLODIPINE BESILATE W/CANDESARTAN CILEXETIL [Suspect]
     Active Substance: AMLODIPINE BESYLATE\CANDESARTAN CILEXETIL
     Indication: PRODUCT USED FOR UNKNOWN INDICATION
     Dosage: UNK UNK, BID, 10|16 MG, 1?0?1?0, TABLETTEN
     Route: 048

REACTIONS (7)
  - Renal impairment [Unknown]
  - Arthralgia [Unknown]
  - Oedema peripheral [Unknown]
  - Dyspnoea [Unknown]
  - Pain in extremity [Unknown]
  - Electrolyte imbalance [Unknown]
  - Pain [Unknown]
